FAERS Safety Report 6568873-4 (Version None)
Quarter: 2010Q1

REPORT INFORMATION
  Report Type: 
  Country: None (occurrence: None)
  Receive Date: 20100128
  Receipt Date: 20100113
  Transmission Date: 20100710
  Serious: Yes (Other)
  Sender: FDA-Public Use
  Company Number: 2010AP000099

PATIENT
  Age: 24 Year
  Sex: Male

DRUGS (4)
  1. ACYCLOVIR [Suspect]
     Indication: HERPES SIMPLEX
     Dosage: 400 MG; PO
     Route: 048
  2. CYCLOSPORINE [Suspect]
  3. FAMCICLOVIR [Suspect]
     Indication: HERPES SIMPLEX
     Dosage: 500 MG; BID; PO; 1000 MG; TID; PO
     Route: 048
  4. ANTI-THYMOCYTE GLOBULIN NOS [Suspect]

REACTIONS (7)
  - DRUG INEFFECTIVE [None]
  - DRUG INTOLERANCE [None]
  - DRUG RESISTANCE [None]
  - HYPONATRAEMIA [None]
  - NEUTROPENIA [None]
  - PATHOGEN RESISTANCE [None]
  - RENAL FAILURE [None]
